FAERS Safety Report 21459528 (Version 1)
Quarter: 2022Q4

REPORT INFORMATION
  Report Type: Spontaneous
  Country: US (occurrence: None)
  Receive Date: 20221014
  Receipt Date: 20221014
  Transmission Date: 20230112
  Serious: Yes (Other)
  Sender: FDA-Public Use
  Company Number: None

PATIENT
  Age: 29 Year
  Sex: Male
  Weight: 60.75 kg

DRUGS (3)
  1. HERBALS\MITRAGYNINE [Suspect]
     Active Substance: HERBALS\MITRAGYNINE
     Indication: Anxiety
     Dosage: OTHER FREQUENCY : NOT SURE;?
     Route: 048
  2. LAMOTRIGINE [Concomitant]
     Active Substance: LAMOTRIGINE
  3. ZONISAMIDE [Concomitant]
     Active Substance: ZONISAMIDE

REACTIONS (2)
  - Dependence [None]
  - Seizure [None]

NARRATIVE: CASE EVENT DATE: 20220225
